FAERS Safety Report 5420865-4 (Version None)
Quarter: 2007Q3

REPORT INFORMATION
  Report Type: 
  Country: None (occurrence: None)
  Receive Date: 20070816
  Receipt Date: 20070731
  Transmission Date: 20080115
  Serious: Yes (Death)
  Sender: FDA-Public Use
  Company Number: 2007JP003637

PATIENT
  Sex: Female

DRUGS (1)
  1. PROGRAF [Suspect]
     Indication: POLYMYOSITIS
     Dosage: 3 MG, /D, ORAL
     Route: 048

REACTIONS (1)
  - OVARIAN CANCER [None]
